FAERS Safety Report 4303443-X (Version None)
Quarter: 2004Q1

REPORT INFORMATION
  Report Type: 
  Country: None (occurrence: None)
  Receive Date: 20040223
  Receipt Date: 20040209
  Transmission Date: 20041129
  Serious: Yes (Hospitalization)
  Sender: FDA-Public Use
  Company Number: 2004-BP-00949NB

PATIENT
  Sex: Male

DRUGS (2)
  1. MICARDIS [Suspect]
     Indication: HYPERTENSION
     Dosage: 40 MG PO
     Route: 048
     Dates: start: 20040120
  2. IMURAN (AZATHIOPRINE) (TA) [Suspect]
     Dosage: 50 MG PO
     Route: 048
     Dates: end: 20040130

REACTIONS (1)
  - LEUKOPENIA [None]
